FAERS Safety Report 11296263 (Version 1)
Quarter: 2015Q3

REPORT INFORMATION
  Report Type: Spontaneous
  Country: US (occurrence: US)
  Receive Date: 20150722
  Receipt Date: 20150722
  Transmission Date: 20151125
  Serious: No
  Sender: FDA-Public Use
  Company Number: US-ELI_LILLY_AND_COMPANY-US200908003083

PATIENT
  Age: 62 Year
  Sex: Female

DRUGS (2)
  1. EFFIENT [Suspect]
     Active Substance: PRASUGREL HYDROCHLORIDE
     Indication: STENT PLACEMENT
     Dosage: 10 MG, DAILY (1/D)
     Dates: start: 20090810, end: 20090812
  2. IBUPROFEN. [Concomitant]
     Active Substance: IBUPROFEN
     Dosage: 2400 MG, DAILY (1/D)

REACTIONS (6)
  - Dyspnoea [Unknown]
  - Pain [Unknown]
  - Intentional product misuse [Recovered/Resolved]
  - Wheezing [Unknown]
  - Medication error [Recovered/Resolved]
  - Headache [Unknown]

NARRATIVE: CASE EVENT DATE: 20090810
